FAERS Safety Report 25138869 (Version 6)
Quarter: 2025Q2

REPORT INFORMATION
  Report Type: Spontaneous
  Country: JP (occurrence: JP)
  Receive Date: 20250331
  Receipt Date: 20250418
  Transmission Date: 20250716
  Serious: Yes (Other)
  Sender: MERCK SHARP & DOHME LLC
  Company Number: JP-009507513-2269736

PATIENT
  Age: 79 Year
  Sex: Female
  Weight: 42 kg

DRUGS (5)
  1. LAGEVRIO [Suspect]
     Active Substance: MOLNUPIRAVIR
     Indication: COVID-19 treatment
     Dosage: 800MG TWICE A DAY
     Route: 048
     Dates: start: 20250321, end: 20250325
  2. MADOPAR Combination Tablets L50 [Concomitant]
     Route: 048
     Dates: start: 20250321
  3. TELMISARTAN [Concomitant]
     Active Substance: TELMISARTAN
     Dosage: 20MG ONCE DAILY
     Route: 048
     Dates: start: 20250321
  4. FENOFIBRATE [Concomitant]
     Active Substance: FENOFIBRATE
     Dosage: 106.6MG ONCE DAILY
     Route: 048
     Dates: start: 20250321
  5. ISTRADEFYLLINE [Concomitant]
     Active Substance: ISTRADEFYLLINE
     Dosage: 20MG ONCE DAILY
     Route: 048
     Dates: start: 20250321

REACTIONS (1)
  - Myelosuppression [Recovered/Resolved]

NARRATIVE: CASE EVENT DATE: 20250324
